FAERS Safety Report 13596388 (Version 1)
Quarter: 2017Q2

REPORT INFORMATION
  Report Type: Spontaneous
  Country: US (occurrence: US)
  Receive Date: 20170530
  Receipt Date: 20170530
  Transmission Date: 20170830
  Serious: Yes (Disabling, Other)
  Sender: FDA-Public Use
  Company Number: None

PATIENT
  Age: 31 Year
  Weight: 94.5 kg

DRUGS (4)
  1. VYVANSE [Concomitant]
     Active Substance: LISDEXAMFETAMINE DIMESYLATE
  2. CYMBALTA [Suspect]
     Active Substance: DULOXETINE HYDROCHLORIDE
     Indication: DEPRESSION
     Dosage: ?          QUANTITY:30 CAPSULE(S);?
     Route: 048
     Dates: start: 20120501
  3. VITAMIN D [Concomitant]
     Active Substance: CHOLECALCIFEROL
  4. PROBIOTIC [Suspect]
     Active Substance: PROBIOTICS NOS

REACTIONS (13)
  - Drug withdrawal syndrome [None]
  - Paraesthesia [None]
  - Irritability [None]
  - Dyspepsia [None]
  - Disturbance in attention [None]
  - Anger [None]
  - Anxiety [None]
  - Obsessive thoughts [None]
  - Constipation [None]
  - Fatigue [None]
  - Head discomfort [None]
  - Suicidal ideation [None]
  - Nausea [None]

NARRATIVE: CASE EVENT DATE: 20170530
